FAERS Safety Report 9808057 (Version 3)
Quarter: 2014Q1

REPORT INFORMATION
  Report Type: Spontaneous
  Country: US (occurrence: US)
  Receive Date: 20140110
  Receipt Date: 20140206
  Transmission Date: 20141002
  Serious: Yes (Life-Threatening, Hospitalization, Other)
  Sender: FDA-Public Use
  Company Number: US-GLAXOSMITHKLINE-A1056006A

PATIENT
  Age: 80 Year
  Sex: Female
  Weight: 84 kg

DRUGS (8)
  1. TAFINLAR [Suspect]
     Indication: MALIGNANT MELANOMA STAGE III
     Dosage: 150MG TWICE PER DAY
     Route: 048
     Dates: start: 20131216
  2. TRIBENZOR [Concomitant]
  3. DYAZIDE [Concomitant]
  4. TENORMIN [Concomitant]
  5. KLOR-CON [Concomitant]
  6. VITAMIN D3 [Concomitant]
  7. NAPRELAN [Concomitant]
  8. NAPROSYN [Concomitant]

REACTIONS (8)
  - Acute pulmonary oedema [Recovered/Resolved]
  - Myalgia [Recovered/Resolved]
  - Chills [Recovered/Resolved]
  - Hypotension [Recovered/Resolved]
  - Pyrexia [Recovered/Resolved]
  - Dyspnoea [Recovered/Resolved]
  - Wheezing [Recovered/Resolved]
  - Drug hypersensitivity [Recovered/Resolved]
